FAERS Safety Report 18133931 (Version 1)
Quarter: 2020Q3

REPORT INFORMATION
  Report Type: Spontaneous
  Country: GE (occurrence: GE)
  Receive Date: 20200811
  Receipt Date: 20200811
  Transmission Date: 20201103
  Serious: Yes (Other)
  Sender: FDA-Public Use
  Company Number: GE-REGENERON PHARMACEUTICALS, INC.-2020-68772

PATIENT

DRUGS (1)
  1. EYLEA [Suspect]
     Active Substance: AFLIBERCEPT
     Indication: PRODUCT USED FOR UNKNOWN INDICATION
     Dosage: UNKNOWN DOSE, FREQUENCY, SITE AND TOTAL NUMBER OF INJECTIONS

REACTIONS (2)
  - Ischaemic stroke [Unknown]
  - Hemiparesis [Unknown]
